FAERS Safety Report 5048715-9 (Version None)
Quarter: 2006Q3

REPORT INFORMATION
  Report Type: 
  Country: None (occurrence: None)
  Receive Date: 20060705
  Receipt Date: 20060629
  Transmission Date: 20061208
  Serious: Yes (Death, Hospitalization)
  Sender: FDA-Public Use
  Company Number: HQWYE485429JUN06

PATIENT
  Sex: Male

DRUGS (1)
  1. AMIODARONE HCL [Suspect]
     Indication: VENTRICULAR TACHYCARDIA
     Dosage: 400 MG 1X PER 1 DAY; SEE IMAGE; (FOR 7 YEARS AT A DOSE OF 200 MG DAILY FOR MOST OF THE TIME)

REACTIONS (4)
  - DRUG EFFECT DECREASED [None]
  - LOWER RESPIRATORY TRACT INFECTION [None]
  - SHOCK [None]
  - VENTRICULAR TACHYCARDIA [None]
